FAERS Safety Report 6682559-7 (Version None)
Quarter: 2010Q2

REPORT INFORMATION
  Report Type: 
  Country: None (occurrence: None)
  Receive Date: 20100415
  Receipt Date: 20100408
  Transmission Date: 20101027
  Serious: Yes (Hospitalization)
  Sender: FDA-Public Use
  Company Number: JP-BAYER-201011213BYL

PATIENT
  Age: 78 Year
  Sex: Male
  Weight: 52 kg

DRUGS (6)
  1. NEXAVAR [Suspect]
     Indication: RENAL CELL CARCINOMA
     Dosage: UNIT DOSE: 200 MG
     Route: 048
     Dates: start: 20100112, end: 20100223
  2. PLAVIX [Concomitant]
     Dosage: UNIT DOSE: 75 MG
     Route: 048
     Dates: end: 20100301
  3. ARICEPT [Concomitant]
     Dosage: UNIT DOSE: 5 MG
     Route: 048
     Dates: end: 20100321
  4. AMLODIPINE [Concomitant]
     Dosage: UNIT DOSE: 5 MG
     Route: 048
     Dates: end: 20100301
  5. MICARDIS [Concomitant]
     Dosage: UNIT DOSE: 40 MG
     Route: 048
     Dates: end: 20100303
  6. AMARYL [Concomitant]
     Dosage: UNIT DOSE: 1 MG
     Route: 048
     Dates: end: 20100301

REACTIONS (2)
  - LIVER DISORDER [None]
  - MALAISE [None]
